FAERS Safety Report 4416115-8 (Version None)
Quarter: 2004Q3

REPORT INFORMATION
  Report Type: 
  Country: None (occurrence: None)
  Receive Date: 20040730
  Receipt Date: 20040720
  Transmission Date: 20050211
  Serious: Yes (Hospitalization, Other)
  Sender: FDA-Public Use
  Company Number: AU-JNJFOC-20040501168

PATIENT
  Age: 44 Year
  Sex: Female
  Weight: 110 kg

DRUGS (6)
  1. RISPERDAL [Suspect]
     Indication: PSYCHOTIC DISORDER
     Dosage: SEE IMAGE
     Route: 048
     Dates: start: 20010730, end: 20040201
  2. RISPERDAL [Suspect]
     Indication: PSYCHOTIC DISORDER
     Dosage: SEE IMAGE
     Route: 048
     Dates: start: 20040201
  3. RISPERDAL [Suspect]
     Indication: PSYCHOTIC DISORDER
     Dosage: SEE IMAGE
     Route: 048
     Dates: start: 20040701
  4. LITHIUM CARBONATE [Suspect]
     Indication: HYPOMANIA
     Dosage: 1000 MG, IN 1 DAY, ORAL
     Route: 048
     Dates: start: 20040210
  5. AMITRIPTYLINE HCL [Concomitant]
  6. METFORMIN HCL [Concomitant]

REACTIONS (8)
  - ATAXIA [None]
  - HEADACHE [None]
  - HYPOMANIA [None]
  - INTRACRANIAL PRESSURE INCREASED [None]
  - OPTIC DISC DISORDER [None]
  - PAPILLOEDEMA [None]
  - RETINAL HAEMORRHAGE [None]
  - THERAPY NON-RESPONDER [None]
